FAERS Safety Report 13711597 (Version 2)
Quarter: 2017Q3

REPORT INFORMATION
  Report Type: Spontaneous
  Country: JP (occurrence: JP)
  Receive Date: 20170703
  Receipt Date: 20170719
  Transmission Date: 20171127
  Serious: Yes (Hospitalization)
  Sender: FDA-Public Use
  Company Number: JP-SA-2017SA117346

PATIENT
  Age: 72 Year
  Sex: Male

DRUGS (1)
  1. JEVTANA [Suspect]
     Active Substance: CABAZITAXEL
     Indication: PROSTATE CANCER
     Route: 042
     Dates: start: 20170601, end: 20170601

REACTIONS (3)
  - Platelet count decreased [Unknown]
  - Blood fibrinogen decreased [Unknown]
  - Disseminated intravascular coagulation [Unknown]
